FAERS Safety Report 11269731 (Version 2)
Quarter: 2015Q3

REPORT INFORMATION
  Report Type: Spontaneous
  Country: EG (occurrence: EG)
  Receive Date: 20150714
  Receipt Date: 20150731
  Transmission Date: 20151125
  Serious: Yes (Hospitalization)
  Sender: FDA-Public Use
  Company Number: EG-NOVOPROD-455380

PATIENT
  Age: 54 Year
  Sex: Male

DRUGS (10)
  1. NOVOMIX 30 FLEXPEN [Suspect]
     Active Substance: INSULIN ASPART
     Indication: DIABETES MELLITUS
     Dosage: 60 IU, QD (30 IU AT DAY AND 30 IU AT NIGHT)
     Route: 058
     Dates: start: 20150601, end: 20150601
  2. ASPIRIN 81 [Concomitant]
     Indication: CARDIAC DISORDER
     Dosage: SINGLE
     Route: 048
     Dates: start: 20150601
  3. NOVOMIX 30 FLEXPEN [Suspect]
     Active Substance: INSULIN ASPART
     Dosage: 30 IU (15 IU /DAY AND NIGHT THEN COULD INCREASE IT TO WENT TO REACH 20 IU)
     Route: 058
  4. CALCITRON [Concomitant]
     Indication: CALCIUM DEFICIENCY
     Dosage: BID
     Route: 048
     Dates: start: 20150601
  5. PLAVIX [Concomitant]
     Active Substance: CLOPIDOGREL BISULFATE
     Indication: COAGULOPATHY
     Dosage: SINGLE
     Route: 065
     Dates: start: 20150625
  6. CONCOR 5 PLUS [Concomitant]
     Indication: HYPERTENSION
     Dosage: SINGLE
     Route: 048
     Dates: start: 20150625
  7. ATOR [Concomitant]
     Active Substance: ATORVASTATIN CALCIUM
     Indication: LIPIDS ABNORMAL
     Dosage: SINGLE
     Route: 065
     Dates: start: 20150625
  8. SILYMARIN [Concomitant]
     Active Substance: MILK THISTLE
     Indication: LIVER DISORDER
     Dosage: SINGLE
     Route: 065
     Dates: start: 20150625
  9. NEUROTON                           /00434802/ [Concomitant]
     Indication: CARDIAC DISORDER
     Dosage: SINGLE
     Route: 048
     Dates: start: 20150601
  10. DIAMICRON [Concomitant]
     Active Substance: GLICLAZIDE
     Indication: DIABETES MELLITUS
     Dosage: 2 TAB, QD
     Route: 048
     Dates: start: 20150625

REACTIONS (2)
  - Overdose [Recovered/Resolved]
  - Hypoglycaemic coma [Recovered/Resolved]

NARRATIVE: CASE EVENT DATE: 20150601
